FAERS Safety Report 6464084-1 (Version None)
Quarter: 2009Q4

REPORT INFORMATION
  Report Type: 
  Country: None (occurrence: None)
  Receive Date: 20091201
  Receipt Date: 20091120
  Transmission Date: 20100525
  Serious: Yes (Hospitalization, Other)
  Sender: FDA-Public Use
  Company Number: US-AMGEN-KDL292437

PATIENT
  Sex: Female

DRUGS (2)
  1. ENBREL [Suspect]
     Indication: PSORIASIS
     Route: 058
     Dates: start: 20060405
  2. AMBIEN [Concomitant]
     Route: 048

REACTIONS (11)
  - ARTHRALGIA [None]
  - BARRETT'S OESOPHAGUS [None]
  - FATIGUE [None]
  - GESTATIONAL DIABETES [None]
  - HAEMOGLOBIN DECREASED [None]
  - INCREASED TENDENCY TO BRUISE [None]
  - JOINT SWELLING [None]
  - OSTEOARTHRITIS [None]
  - PREMATURE LABOUR [None]
  - REFLUX OESOPHAGITIS [None]
  - WEIGHT INCREASED [None]
